FAERS Safety Report 20063096 (Version 2)
Quarter: 2022Q1

REPORT INFORMATION
  Report Type: Report from Study
  Country: US (occurrence: US)
  Receive Date: 20211112
  Receipt Date: 20220208
  Transmission Date: 20220423
  Serious: Yes (Hospitalization)
  Sender: FDA-Public Use
  Company Number: US-PHARMACOVIGILANCE-US-KAD-21-00016

PATIENT
  Age: 17 Year
  Sex: Male

DRUGS (1)
  1. REZUROCK [Suspect]
     Active Substance: BELUMOSUDIL
     Indication: Graft versus host disease
     Dosage: 200 MILLIGRAMS TWICE DAILY, WITH FOOD VIA NASOGASTRIC TUBE
     Route: 050
     Dates: start: 20210907

REACTIONS (13)
  - Pneumothorax [Recovering/Resolving]
  - Pneumonia bacterial [Recovered/Resolved]
  - Infection [Not Recovered/Not Resolved]
  - Gastritis [Unknown]
  - Heart rate irregular [Unknown]
  - Blood pressure abnormal [Unknown]
  - Blood pressure increased [Unknown]
  - Nausea [Not Recovered/Not Resolved]
  - Diarrhoea [Unknown]
  - Pyrexia [Recovered/Resolved]
  - Asthenia [Not Recovered/Not Resolved]
  - Dyspnoea [Unknown]
  - Cough [Unknown]

NARRATIVE: CASE EVENT DATE: 20210921
